FAERS Safety Report 9149055 (Version 1)
Quarter: 2013Q1

REPORT INFORMATION
  Report Type: Spontaneous
  Country: US (occurrence: None)
  Receive Date: 20130228
  Receipt Date: 20130228
  Transmission Date: 20140127
  Serious: Yes (Hospitalization)
  Sender: FDA-Public Use
  Company Number: None

PATIENT
  Age: 62 Year
  Sex: Female

DRUGS (1)
  1. XELODA [Suspect]
     Route: 002
     Dates: start: 20121204, end: 20130225

REACTIONS (5)
  - Pericardial effusion [None]
  - Pleural effusion [None]
  - Dyspnoea [None]
  - Local swelling [None]
  - Local swelling [None]
